FAERS Safety Report 15198544 (Version 1)
Quarter: 2018Q3

REPORT INFORMATION
  Report Type: Spontaneous
  Country: US (occurrence: US)
  Receive Date: 20180627
  Receipt Date: 20180627
  Transmission Date: 20181010
  Serious: Yes (Hospitalization)
  Sender: FDA-Public Use
  Company Number: None

PATIENT
  Age: 64 Year
  Sex: Female

DRUGS (9)
  1. HCTZ [Concomitant]
     Active Substance: HYDROCHLOROTHIAZIDE
  2. TIROSINT (LEVOTHYROXINE) [Concomitant]
  3. DEXAMETHASONE. [Concomitant]
     Active Substance: DEXAMETHASONE
  4. LISINOPRIL. [Concomitant]
     Active Substance: LISINOPRIL
  5. GLEOSTINE [Suspect]
     Active Substance: LOMUSTINE
     Indication: NEOPLASM MALIGNANT
     Dosage: 4 CAPSULES; Q 6 WEEKS; ORAL?
     Route: 048
     Dates: start: 20180522
  6. LEVETIRACETA [Concomitant]
  7. ANORO ELLIPT [Concomitant]
  8. CITALOPRAM [Concomitant]
     Active Substance: CITALOPRAM HYDROBROMIDE
  9. TOLTERODINE [Concomitant]
     Active Substance: TOLTERODINE

REACTIONS (1)
  - Hospitalisation [None]
